FAERS Safety Report 5956662-0 (Version None)
Quarter: 2008Q4

REPORT INFORMATION
  Report Type: 
  Country: None (occurrence: None)
  Receive Date: 20081118
  Receipt Date: 20081104
  Transmission Date: 20090506
  Serious: Yes (Other)
  Sender: FDA-Public Use
  Company Number: CA-GENENTECH-271169

PATIENT

DRUGS (1)
  1. AVASTIN [Suspect]
     Indication: TOXIC ANTERIOR SEGMENT SYNDROME
     Dosage: UNK VIAL, UNK
     Route: 031

REACTIONS (4)
  - EYE INFLAMMATION [None]
  - UVEITIS [None]
  - VISION BLURRED [None]
  - VITRITIS [None]
